FAERS Safety Report 22050928 (Version 1)
Quarter: 2023Q1

REPORT INFORMATION
  Report Type: Spontaneous
  Country: US (occurrence: None)
  Receive Date: 20230301
  Receipt Date: 20230301
  Transmission Date: 20230418
  Serious: Yes (Death)
  Sender: FDA-Public Use
  Company Number: None

PATIENT
  Age: 63 Year
  Sex: Female

DRUGS (9)
  1. CAPECITABINE [Suspect]
     Active Substance: CAPECITABINE
     Indication: Pancreatic carcinoma
     Dosage: FREQUENCY : TWICE A DAY;?
     Route: 048
     Dates: start: 20230125, end: 20230216
  2. FEMRING [Concomitant]
     Active Substance: ESTRADIOL ACETATE
  3. MORPHONE SUL [Concomitant]
  4. OXYCODONE [Concomitant]
     Active Substance: OXYCODONE
  5. PREGABALIN [Concomitant]
     Active Substance: PREGABALIN
  6. PREGABALIN [Concomitant]
     Active Substance: PREGABALIN
  7. PROGESTERONE [Concomitant]
  8. TESTOSTERONE CYPIONATE [Concomitant]
     Active Substance: TESTOSTERONE CYPIONATE
  9. DOCUSATE SOD [Concomitant]

REACTIONS (1)
  - Death [None]

NARRATIVE: CASE EVENT DATE: 20230216
